FAERS Safety Report 11874158 (Version 1)
Quarter: 2015Q4

REPORT INFORMATION
  Report Type: Spontaneous
  Country: US (occurrence: US)
  Receive Date: 20151229
  Receipt Date: 20151229
  Transmission Date: 20160305
  Serious: Yes (Other)
  Sender: FDA-Public Use
  Company Number: US-DRREDDYS-USA/USA/15/0055051

PATIENT
  Age: 17 Year
  Sex: Female

DRUGS (1)
  1. MINOCYCLINE HYDROCHLORIDE. [Suspect]
     Active Substance: MINOCYCLINE HYDROCHLORIDE
     Indication: ACNE
     Route: 065

REACTIONS (4)
  - Anti-thyroid antibody positive [Unknown]
  - Vasculitis necrotising [Recovered/Resolved]
  - Antinuclear antibody positive [Unknown]
  - Ischaemic stroke [Recovered/Resolved]
